FAERS Safety Report 10045699 (Version 2)
Quarter: 2014Q2

REPORT INFORMATION
  Report Type: Spontaneous
  Country: IT (occurrence: IT)
  Receive Date: 20140328
  Receipt Date: 20140526
  Transmission Date: 20141212
  Serious: Yes (Other)
  Sender: FDA-Public Use
  Company Number: IT-009507513-1403ITA012091

PATIENT
  Age: 85 Year
  Sex: Female

DRUGS (3)
  1. MIRTAZAPINE [Suspect]
     Indication: MEDICATION ERROR
     Dosage: 7.5 MG TOTAL
     Route: 048
     Dates: start: 20131201, end: 20131201
  2. MIRTAZAPINE [Suspect]
     Dosage: 1/4 TABLET DAILY, IN THE EVENING
     Route: 048
  3. MOTILIUM [Concomitant]
     Dosage: 2.5 MG DAILY, IN THE MORNING
     Route: 048

REACTIONS (2)
  - Psychomotor skills impaired [Recovered/Resolved]
  - Medication error [Recovered/Resolved]
